FAERS Safety Report 8397713-6 (Version None)
Quarter: 2012Q2

REPORT INFORMATION
  Report Type: 
  Country: None (occurrence: None)
  Receive Date: 20120531
  Receipt Date: 20120521
  Transmission Date: 20120825
  Serious: Yes (Hospitalization)
  Sender: FDA-Public Use
  Company Number: JP-VERTEX PHARMACEUTICALS INC.-AE-2012-005504

PATIENT
  Age: 61 Year
  Sex: Male

DRUGS (24)
  1. RIBAVIRIN [Concomitant]
     Route: 048
     Dates: start: 20120517
  2. TELAVIC (TELAPREVIR) [Suspect]
     Route: 048
     Dates: start: 20120303, end: 20120328
  3. RIBAVIRIN [Concomitant]
     Indication: HEPATITIS C
     Route: 048
     Dates: start: 20120222, end: 20120302
  4. RIBAVIRIN [Concomitant]
     Route: 048
     Dates: start: 20120502, end: 20120516
  5. PEGINTERFERON ALFA-2B [Concomitant]
     Indication: HEPATITIS C
     Route: 051
     Dates: start: 20120222
  6. LOCHOLEST [Concomitant]
     Route: 048
  7. NERISONA [Concomitant]
     Route: 051
  8. MYSER CREAM 0.05% [Concomitant]
     Route: 061
  9. WARFARIN POTASSIUM [Concomitant]
     Route: 048
     Dates: start: 20120405, end: 20120418
  10. RINDERON A [Concomitant]
     Route: 061
  11. TELAVIC (TELAPREVIR) [Suspect]
     Indication: HEPATITIS C
     Route: 048
     Dates: start: 20120222, end: 20120302
  12. ASPIRIN [Concomitant]
     Route: 048
  13. LOCOID [Concomitant]
     Route: 061
  14. TALION OD [Concomitant]
     Route: 048
     Dates: start: 20120221, end: 20120403
  15. WARFARIN POTASSIUM [Concomitant]
     Route: 048
     Dates: end: 20120404
  16. WARFARIN POTASSIUM [Concomitant]
     Route: 048
     Dates: start: 20120426
  17. CANDESARTAN CILEXETIL AND HYDROCHLOROTHIAZIDE [Concomitant]
     Route: 048
  18. TELAVIC (TELAPREVIR) [Suspect]
     Route: 048
     Dates: start: 20120329, end: 20120411
  19. WARFARIN POTASSIUM [Concomitant]
     Route: 048
     Dates: start: 20120419, end: 20120425
  20. NORVASC [Concomitant]
     Route: 048
     Dates: start: 20120319
  21. RIBAVIRIN [Concomitant]
     Route: 048
     Dates: start: 20120303, end: 20120313
  22. RIBAVIRIN [Concomitant]
     Route: 048
     Dates: start: 20120314, end: 20120410
  23. NIZORAL [Concomitant]
     Route: 061
  24. NORVASC [Concomitant]
     Route: 048
     Dates: end: 20120318

REACTIONS (4)
  - HAEMOGLOBIN DECREASED [None]
  - DRUG ERUPTION [None]
  - DECREASED APPETITE [None]
  - HYPERURICAEMIA [None]
